FAERS Safety Report 7029515-7 (Version None)
Quarter: 2010Q4

REPORT INFORMATION
  Report Type: 
  Country: None (occurrence: None)
  Receive Date: 20101005
  Receipt Date: 20100930
  Transmission Date: 20110411
  Serious: Yes (Other)
  Sender: FDA-Public Use
  Company Number: CO-WYE-H17923510

PATIENT
  Sex: Female

DRUGS (7)
  1. RAPAMUNE [Suspect]
     Indication: PROPHYLAXIS AGAINST TRANSPLANT REJECTION
     Route: 048
     Dates: start: 20050101
  2. METOPROLOL [Concomitant]
     Indication: HYPERTENSION
     Dosage: UNKNOWN
     Route: 048
     Dates: start: 20050101
  3. CALCITRIOL [Concomitant]
     Dosage: UNKNOWN
     Route: 048
     Dates: start: 20050101
  4. LOVASTATIN [Concomitant]
     Indication: RENAL TRANSPLANT
     Route: 048
     Dates: start: 20050101
  5. CALCIUM [Concomitant]
     Dosage: UNKNOWN
     Route: 048
     Dates: start: 20050101
  6. INSULIN [Concomitant]
     Indication: DIABETES MELLITUS
     Dosage: UNKNOWN
     Route: 058
     Dates: start: 20040101
  7. PREDNISOLONE [Concomitant]
     Indication: PROPHYLAXIS AGAINST TRANSPLANT REJECTION
     Dosage: UNKNOWN
     Route: 048
     Dates: start: 20050101

REACTIONS (2)
  - CATARACT [None]
  - GLAUCOMA [None]
